FAERS Safety Report 21354452 (Version 2)
Quarter: 2022Q4

REPORT INFORMATION
  Report Type: Report from Study
  Country: US (occurrence: US)
  Receive Date: 20220920
  Receipt Date: 20221114
  Transmission Date: 20230113
  Serious: Yes (Other)
  Sender: FDA-Public Use
  Company Number: US-BRISTOL-MYERS SQUIBB COMPANY-2022-094636

PATIENT
  Age: 71 Year
  Sex: Male
  Weight: 82.64 kg

DRUGS (12)
  1. REVLIMID [Suspect]
     Active Substance: LENALIDOMIDE
     Indication: Plasma cell myeloma
     Dosage: DAILY, -TAKE 1 CAPSULE DAILY FOR 21 DAYS, THEN 7 DAYS OFF OF A 28 DAY CYCLE
     Route: 048
     Dates: start: 20210923
  2. REVLIMID [Suspect]
     Active Substance: LENALIDOMIDE
     Dosage: DAILY, -TAKE 1 CAPSULE DAILY FOR 21 DAYS, THEN 7 DAYS OFF OF A 28 DAY CYCLE
     Route: 048
  3. ASPIRIN [Suspect]
     Active Substance: ASPIRIN
     Indication: Product used for unknown indication
     Route: 065
  4. DARZALEX [Concomitant]
     Active Substance: DARATUMUMAB
  5. CALCIUM [Concomitant]
     Active Substance: CALCIUM
  6. HYDROCODONE [Concomitant]
     Active Substance: HYDROCODONE
  7. ACETAMINOPHEN [Concomitant]
     Active Substance: ACETAMINOPHEN
  8. MIRALAX [Concomitant]
     Active Substance: POLYETHYLENE GLYCOL 3350
  9. PHOSPHATE LAXATIVE [Concomitant]
  10. TYLENOL [Concomitant]
     Active Substance: ACETAMINOPHEN
  11. VELCADE [Concomitant]
     Active Substance: BORTEZOMIB
  12. VITAMIN B1 [Concomitant]
     Active Substance: THIAMINE HYDROCHLORIDE

REACTIONS (8)
  - Haemorrhage [Unknown]
  - COVID-19 [Unknown]
  - Diarrhoea [Unknown]
  - Blood blister [Unknown]
  - Dehydration [Unknown]
  - Neuropathy peripheral [Unknown]
  - Insomnia [Unknown]
  - Nasopharyngitis [Unknown]

NARRATIVE: CASE EVENT DATE: 20220723
